FAERS Safety Report 8481161-4 (Version None)
Quarter: 2012Q3

REPORT INFORMATION
  Report Type: 
  Country: None (occurrence: None)
  Receive Date: 20120702
  Receipt Date: 20120627
  Transmission Date: 20120928
  Serious: Yes (Other)
  Sender: FDA-Public Use
  Company Number: PHHY2012TR054855

PATIENT
  Age: 16 Year
  Sex: Female

DRUGS (8)
  1. CYCLOSPORINE [Suspect]
     Indication: BEHCET'S SYNDROME
     Dosage: 5 MG/KG, DAILY
  2. INFLIXIMAB [Concomitant]
     Dosage: 5 MG/KG, UNK
  3. AZATHIOPRINE [Suspect]
     Indication: BEHCET'S SYNDROME
     Dosage: 2.5 MG/KG/DAY
  4. CANAKINUMAB [Concomitant]
     Dosage: 150 MG, UNK
  5. INTERFERON ALFA [Concomitant]
     Dosage: 5 MU DAILY
  6. ADALIMUMAB [Concomitant]
  7. PREDNISOLONE [Suspect]
     Indication: BEHCET'S SYNDROME
  8. ANAKINRA [Concomitant]
     Dosage: 2 MG/KG, UNK

REACTIONS (9)
  - OPTIC ATROPHY [None]
  - PYREXIA [None]
  - DRUG INEFFECTIVE [None]
  - EYE INFLAMMATION [None]
  - ERYTHEMA NODOSUM [None]
  - UVEITIS [None]
  - VISUAL ACUITY REDUCED [None]
  - CATARACT [None]
  - HYPOPYON [None]
